FAERS Safety Report 11079061 (Version 1)
Quarter: 2015Q2

REPORT INFORMATION
  Report Type: Spontaneous
  Country: AT (occurrence: AT)
  Receive Date: 20150430
  Receipt Date: 20150430
  Transmission Date: 20150821
  Serious: Yes (Hospitalization)
  Sender: FDA-Public Use
  Company Number: AT-PERRIGO-15AT004241

PATIENT
  Age: 79 Year
  Sex: Male

DRUGS (6)
  1. ASPIRIN. [Suspect]
     Active Substance: ASPIRIN
     Indication: ANTICOAGULANT THERAPY
     Dosage: UNK
     Route: 048
     Dates: start: 2011
  2. ANALGESICS AND ANESTHETICS [Concomitant]
     Indication: INTERVERTEBRAL DISCITIS
  3. ANTIBIOTICS [Concomitant]
     Active Substance: UNSPECIFIED INGREDIENT
     Indication: INTERVERTEBRAL DISCITIS
     Dosage: UNK
     Route: 065
     Dates: start: 201210
  4. ANALGESICS AND ANESTHETICS [Concomitant]
     Indication: NECK PAIN
     Dosage: UNK
     Route: 065
     Dates: start: 201210
  5. IBUPROFEN 200 MG 604 [Suspect]
     Active Substance: IBUPROFEN
     Indication: PAIN
     Dosage: 400 MG, BID
     Route: 048
     Dates: start: 20121002, end: 20121011
  6. TICAGRELOR [Concomitant]
     Active Substance: TICAGRELOR
     Indication: ANTICOAGULANT THERAPY
     Dosage: UNK
     Route: 065
     Dates: start: 2011, end: 20121005

REACTIONS (5)
  - Acute myocardial infarction [Recovered/Resolved]
  - Cardiogenic shock [None]
  - Inhibitory drug interaction [Recovered/Resolved]
  - Thrombosis in device [Recovered/Resolved]
  - Coagulation time shortened [Recovered/Resolved]

NARRATIVE: CASE EVENT DATE: 20121011
